FAERS Safety Report 21667522 (Version 1)
Quarter: 2022Q4

REPORT INFORMATION
  Report Type: Spontaneous
  Country: US (occurrence: US)
  Receive Date: 20221201
  Receipt Date: 20221201
  Transmission Date: 20230112
  Serious: No
  Sender: FDA-Public Use
  Company Number: US-ABBVIE-4186360

PATIENT
  Sex: Male

DRUGS (2)
  1. HUMIRA [Suspect]
     Active Substance: ADALIMUMAB
     Indication: Colitis ulcerative
     Dosage: THIS REGIMEN WAS START ON 05 NOV 2022
     Route: 058
  2. HUMIRA [Suspect]
     Active Substance: ADALIMUMAB
     Dosage: MISSED DOSE
     Route: 058

REACTIONS (4)
  - Intentional product misuse [Unknown]
  - Anxiety [Unknown]
  - Unevaluable event [Not Recovered/Not Resolved]
  - Device leakage [Unknown]
